FAERS Safety Report 18045893 (Version 3)
Quarter: 2020Q3

REPORT INFORMATION
  Report Type: Spontaneous
  Country: US (occurrence: US)
  Receive Date: 20200721
  Receipt Date: 20200812
  Transmission Date: 20201103
  Serious: Yes (Other)
  Sender: FDA-Public Use
  Company Number: US-ABBVIE-20K-163-3371575-00

PATIENT
  Sex: Female

DRUGS (1)
  1. HUMIRA [Suspect]
     Active Substance: ADALIMUMAB
     Indication: PRODUCT USED FOR UNKNOWN INDICATION
     Route: 058

REACTIONS (10)
  - Gastric disorder [Recovered/Resolved]
  - COVID-19 [Recovered/Resolved]
  - Irritable bowel syndrome [Unknown]
  - Pneumonia [Not Recovered/Not Resolved]
  - Systemic lupus erythematosus [Unknown]
  - Immunodeficiency [Unknown]
  - Colitis [Unknown]
  - Osteoarthritis [Unknown]
  - Hypersensitivity [Unknown]
  - Asthma [Unknown]

NARRATIVE: CASE EVENT DATE: 2020
